FAERS Safety Report 21974680 (Version 1)
Quarter: 2023Q1

REPORT INFORMATION
  Report Type: Spontaneous
  Country: US (occurrence: US)
  Receive Date: 20230209
  Receipt Date: 20230209
  Transmission Date: 20230417
  Serious: Yes (Death, Hospitalization)
  Sender: FDA-Public Use
  Company Number: US-TEVA-2023-US-2852591

PATIENT
  Age: 60 Year
  Sex: Male

DRUGS (18)
  1. DEXAMETHASONE [Suspect]
     Active Substance: DEXAMETHASONE
     Indication: Plasma cell myeloma
     Dosage: CYCLICAL ONCE WEEKLY
     Route: 042
  2. DEXAMETHASONE [Suspect]
     Active Substance: DEXAMETHASONE
     Indication: Hyperammonaemic encephalopathy
     Dosage: ONE CYCLE OF IV BOLUS OF DEXAMETHASONE 40 MG DAILY
     Route: 040
  3. LACTULOSE [Suspect]
     Active Substance: LACTULOSE
     Indication: Plasma cell myeloma
     Route: 065
  4. LACTULOSE [Suspect]
     Active Substance: LACTULOSE
     Indication: Hyperammonaemic encephalopathy
  5. ETOPOSIDE [Suspect]
     Active Substance: ETOPOSIDE
     Indication: Plasma cell myeloma
     Dosage: ONE CYCLE OF CONTINUOUS IV INFUSION OF ETOPOSIDE 40 MG/M2 /DAY FROM THE DAY 1 TO DAY 4
     Route: 041
  6. ETOPOSIDE [Suspect]
     Active Substance: ETOPOSIDE
     Indication: Hyperammonaemic encephalopathy
  7. CISPLATIN [Suspect]
     Active Substance: CISPLATIN
     Indication: Plasma cell myeloma
     Dosage: ONE CYCLE OF CONTINUOUS IV INFUSION OF CISPLATIN 10 MG/M2 /DAY FROM THE DAY 1 TO DAY 4
     Route: 041
  8. CISPLATIN [Suspect]
     Active Substance: CISPLATIN
     Indication: Hyperammonaemic encephalopathy
  9. RIFAXIMIN [Suspect]
     Active Substance: RIFAXIMIN
     Indication: Plasma cell myeloma
     Route: 065
  10. RIFAXIMIN [Suspect]
     Active Substance: RIFAXIMIN
     Indication: Hyperammonaemic encephalopathy
  11. DARATUMUMAB [Suspect]
     Active Substance: DARATUMUMAB
     Indication: Plasma cell myeloma
     Route: 058
  12. DARATUMUMAB [Suspect]
     Active Substance: DARATUMUMAB
     Indication: Hyperammonaemic encephalopathy
  13. CYCLOPHOSPHAMIDE [Suspect]
     Active Substance: CYCLOPHOSPHAMIDE
     Indication: Plasma cell myeloma
     Dosage: CYCLICAL CYCLOPHOSPHAMIDE ONCE WEEKLY
     Route: 042
  14. CYCLOPHOSPHAMIDE [Suspect]
     Active Substance: CYCLOPHOSPHAMIDE
     Indication: Hyperammonaemic encephalopathy
     Dosage: ONE CYCLE OF CONTINUOUS IV INFUSION OF CYCLOPHOSPHAMIDE 400 MG/M2/DAY FROM THE DAY 1 TO DAY 4
     Route: 041
  15. BORTEZOMIB [Suspect]
     Active Substance: BORTEZOMIB
     Indication: Plasma cell myeloma
     Dosage: CYCLICAL BORTEZOMIB ONCE WEEKLY
     Route: 042
  16. BORTEZOMIB [Suspect]
     Active Substance: BORTEZOMIB
     Indication: Hyperammonaemic encephalopathy
  17. VENETOCLAX [Suspect]
     Active Substance: VENETOCLAX
     Indication: Plasma cell myeloma
     Dosage: 200 MILLIGRAM DAILY;
     Route: 065
  18. VENETOCLAX [Suspect]
     Active Substance: VENETOCLAX
     Indication: Hyperammonaemic encephalopathy
     Dosage: 400 MILLIGRAM DAILY;
     Route: 065

REACTIONS (1)
  - Drug ineffective [Fatal]
